FAERS Safety Report 4442680-0 (Version None)
Quarter: 2004Q3

REPORT INFORMATION
  Report Type: 
  Country: None (occurrence: None)
  Receive Date: 20040903
  Receipt Date: 20040514
  Transmission Date: 20050211
  Serious: Yes (Other)
  Sender: FDA-Public Use
  Company Number: 2004UW10124

PATIENT
  Age: 58 Year
  Sex: Male
  Weight: 107.5025 kg

DRUGS (3)
  1. CRESTOR [Suspect]
     Indication: BLOOD CHOLESTEROL INCREASED
     Dates: start: 20040301
  2. BENAZEPRIL HCL [Concomitant]
  3. ASPIRIN [Concomitant]

REACTIONS (6)
  - HEADACHE [None]
  - ILL-DEFINED DISORDER [None]
  - LIP PAIN [None]
  - OEDEMA MOUTH [None]
  - PHARYNGOLARYNGEAL PAIN [None]
  - TOOTHACHE [None]
